FAERS Safety Report 18145382 (Version 1)
Quarter: 2020Q3

REPORT INFORMATION
  Report Type: Report from Study
  Country: US (occurrence: US)
  Receive Date: 20200813
  Receipt Date: 20200813
  Transmission Date: 20201103
  Serious: Yes (Hospitalization, Other)
  Sender: FDA-Public Use
  Company Number: US-BIOGEN-2020BI00908863

PATIENT
  Sex: Female

DRUGS (1)
  1. TECFIDERA [Suspect]
     Active Substance: DIMETHYL FUMARATE
     Indication: MULTIPLE SCLEROSIS
     Route: 065
     Dates: start: 20131030

REACTIONS (10)
  - Suicidal ideation [Unknown]
  - Memory impairment [Unknown]
  - Foot fracture [Unknown]
  - Fear [Unknown]
  - Gait inability [Unknown]
  - Arthropathy [Unknown]
  - Fall [Recovered/Resolved]
  - Tremor [Unknown]
  - Urinary tract infection [Unknown]
  - Loss of control of legs [Unknown]
